FAERS Safety Report 21119682 (Version 1)
Quarter: 2022Q3

REPORT INFORMATION
  Report Type: Spontaneous
  Country: IN (occurrence: None)
  Receive Date: 20220721
  Receipt Date: 20220721
  Transmission Date: 20221027
  Serious: Yes (Other)
  Sender: FDA-Public Use
  Company Number: None

PATIENT
  Age: 70 Year
  Sex: Male
  Weight: 65 kg

DRUGS (2)
  1. OPDIVO [Suspect]
     Active Substance: NIVOLUMAB
     Indication: Pancreatic carcinoma
  2. OPDIVO [Concomitant]
     Active Substance: NIVOLUMAB
     Dates: start: 20220401

REACTIONS (2)
  - Dyspnoea [None]
  - Immune-mediated lung disease [None]
